FAERS Safety Report 20997262 (Version 2)
Quarter: 2025Q3

REPORT INFORMATION
  Report Type: Report from Study
  Country: US (occurrence: US)
  Receive Date: 20220623
  Receipt Date: 20250921
  Transmission Date: 20251021
  Serious: No
  Sender: MERCK SHARP & DOHME LLC
  Company Number: US-009507513-2206USA001269

PATIENT
  Age: 67 Year
  Sex: Female

DRUGS (5)
  1. JANUMET [Suspect]
     Active Substance: METFORMIN HYDROCHLORIDE\SITAGLIPTIN PHOSPHATE
     Indication: Type 2 diabetes mellitus
     Dosage: TAKE 1 TABLET DAILY
     Route: 048
     Dates: start: 20241023
  2. JANUMET [Suspect]
     Active Substance: METFORMIN HYDROCHLORIDE\SITAGLIPTIN PHOSPHATE
     Indication: Type 2 diabetes mellitus
     Dosage: DOSE DESCRIPTION : 1 TABLET, DAILY?DAILY DOSE : 1 DOSAGE FORM
     Route: 048
     Dates: end: 202203
  3. METFORMIN [Suspect]
     Active Substance: METFORMIN HYDROCHLORIDE
     Indication: Type 2 diabetes mellitus
     Dosage: DOSE DESCRIPTION : 750 MILLIGRAM /1 TABLET, DAILY?DAILY DOSE : 750 MILLIGRAM?CONCENTRATION: 750 M...
     Route: 048
  4. LISINOPRIL [Concomitant]
     Active Substance: LISINOPRIL
  5. ROSUVASTATIN [Concomitant]
     Active Substance: ROSUVASTATIN

REACTIONS (8)
  - Blood glucose increased [Unknown]
  - Blood glucose increased [Not Recovered/Not Resolved]
  - Product use issue [Unknown]
  - Drug ineffective [Not Recovered/Not Resolved]
  - Product dose omission issue [Unknown]
  - Inability to afford medication [Unknown]
  - Incorrect dose administered [Unknown]
  - Incorrect dose administered [Unknown]

NARRATIVE: CASE EVENT DATE: 20220301
